FAERS Safety Report 7631763-X (Version None)
Quarter: 2011Q3

REPORT INFORMATION
  Report Type: 
  Country: None (occurrence: None)
  Receive Date: 20110725
  Receipt Date: 20110309
  Transmission Date: 20111222
  Serious: Yes (Other)
  Sender: FDA-Public Use
  Company Number: US-BRISTOL-MYERS SQUIBB COMPANY-15597420

PATIENT
  Age: 85 Year
  Sex: Male

DRUGS (12)
  1. POTASSIUM CHLORIDE [Concomitant]
     Dosage: 10MEQ 2 TABS DAILY
  2. WARFARIN SODIUM [Suspect]
     Indication: ATRIAL FIBRILLATION
     Dosage: ALSO TAKEN AS A CONMED.2.5MG ON MONDAY+WEDNESDAY +5MG ON ALL OTHER DAYS OF THE WEEK.
  3. NAMENDA [Concomitant]
  4. FINASTERIDE [Concomitant]
  5. LISINOPRIL [Concomitant]
     Dosage: 1DF=10MG 1/2 TABLET DAILY
  6. MULTI-VITAMIN [Concomitant]
  7. LEVOTHYROXINE SODIUM [Concomitant]
  8. LASIX [Concomitant]
     Dosage: 1DF= 2TABS,LASIX 20MG
  9. GABAPENTIN [Concomitant]
     Dosage: 1DF= GABAPENTIN 100MG 4CAPSULES.AT BED TIME
  10. WARFARIN SODIUM [Suspect]
     Indication: HEART VALVE REPLACEMENT
     Dosage: ALSO TAKEN AS A CONMED.2.5MG ON MONDAY+WEDNESDAY +5MG ON ALL OTHER DAYS OF THE WEEK.
  11. PLAVIX [Concomitant]
  12. FOLIC ACID [Concomitant]

REACTIONS (7)
  - CEREBROVASCULAR ACCIDENT [None]
  - DYSARTHRIA [None]
  - ASTHENIA [None]
  - URINARY BLADDER HAEMORRHAGE [None]
  - BALANCE DISORDER [None]
  - INTERNATIONAL NORMALISED RATIO FLUCTUATION [None]
  - FALL [None]
